FAERS Safety Report 17221863 (Version 1)
Quarter: 2020Q1

REPORT INFORMATION
  Report Type: Spontaneous
  Country: KW (occurrence: KW)
  Receive Date: 20200101
  Receipt Date: 20200101
  Transmission Date: 20200409
  Serious: Yes (Hospitalization)
  Sender: FDA-Public Use
  Company Number: KW-INVENTIA-000345

PATIENT
  Age: 8 Year
  Sex: Female

DRUGS (2)
  1. FLUOXETINE [Interacting]
     Active Substance: FLUOXETINE HYDROCHLORIDE
     Indication: ANXIETY
     Dosage: OVER 8 WEEKS
  2. DULOXETINE. [Suspect]
     Active Substance: DULOXETINE
     Indication: ANXIETY
     Dosage: TITRATED UP TO 60 MG/D

REACTIONS (4)
  - Supraventricular tachyarrhythmia [Recovered/Resolved]
  - Presyncope [Recovered/Resolved]
  - Drug interaction [Unknown]
  - Nausea [Recovered/Resolved]
